FAERS Safety Report 6264548-X (Version None)
Quarter: 2009Q3

REPORT INFORMATION
  Report Type: 
  Country: None (occurrence: None)
  Receive Date: 20090710
  Receipt Date: 20090706
  Transmission Date: 20100115
  Serious: Yes (Other)
  Sender: FDA-Public Use
  Company Number: US-ALLERGAN-0909475US

PATIENT
  Age: 47 Year
  Sex: Female

DRUGS (1)
  1. BOTOX COSMETIC [Suspect]
     Indication: SKIN WRINKLING
     Dosage: 20 UNITS, SINGLE
     Route: 030
     Dates: start: 20090627, end: 20090627

REACTIONS (5)
  - EYE SWELLING [None]
  - EYELID PTOSIS [None]
  - FACIAL PALSY [None]
  - FACIAL PARESIS [None]
  - SWELLING FACE [None]
